FAERS Safety Report 9743591 (Version 2)
Quarter: 2013Q4

REPORT INFORMATION
  Report Type: Spontaneous
  Country: JP (occurrence: JP)
  Receive Date: 20131210
  Receipt Date: 20131210
  Transmission Date: 20140711
  Serious: Yes (Other)
  Sender: FDA-Public Use
  Company Number: JP-TAKEDA-TPA2013A07388

PATIENT
  Sex: 0

DRUGS (5)
  1. FEBURIC [Suspect]
     Route: 048
     Dates: start: 201305, end: 201306
  2. ZYLORIC [Suspect]
     Route: 048
     Dates: end: 201305
  3. SUVENYL [Concomitant]
     Indication: OSTEOARTHRITIS
     Dosage: UNK
     Route: 050
  4. NORVASC [Concomitant]
     Dosage: 5 MG, QD
     Route: 048
  5. FREEDOCAINE [Concomitant]
     Indication: OSTEOARTHRITIS
     Route: 050

REACTIONS (1)
  - Interstitial lung disease [Unknown]
